FAERS Safety Report 9735678 (Version 4)
Quarter: 2015Q2

REPORT INFORMATION
  Report Type: Spontaneous
  Country: US (occurrence: US)
  Receive Date: 20131206
  Receipt Date: 20150629
  Transmission Date: 20150821
  Serious: Yes (Hospitalization, Disabling, Other)
  Sender: FDA-Public Use
  Company Number: US-009507513-1312USA001257

PATIENT
  Sex: Female
  Weight: 79.37 kg

DRUGS (7)
  1. POTASSIUM (UNSPECIFIED) [Concomitant]
     Active Substance: POTASSIUM
     Dosage: UNK
     Dates: start: 1980
  2. FOSAMAX [Suspect]
     Active Substance: ALENDRONATE SODIUM
     Dosage: 70 MG, QW
     Route: 048
     Dates: start: 1995, end: 20110903
  3. FOSAMAX [Suspect]
     Active Substance: ALENDRONATE SODIUM
     Indication: OSTEOPENIA
     Dosage: 5 MG, UNK
     Route: 048
     Dates: start: 1995, end: 200801
  4. ALENDRONATE SODIUM. [Suspect]
     Active Substance: ALENDRONATE SODIUM
     Indication: OSTEOPENIA
     Dosage: 70 MG, UNK
     Route: 048
     Dates: start: 200802, end: 20110725
  5. ALENDRONATE SODIUM. [Suspect]
     Active Substance: ALENDRONATE SODIUM
     Dosage: 10 MG, QD
  6. CALCIUM (UNSPECIFIED) [Concomitant]
     Active Substance: CALCIUM
     Dosage: UNK
     Dates: start: 1980
  7. SYNTHROID [Concomitant]
     Active Substance: LEVOTHYROXINE SODIUM
     Indication: HYPOTHYROIDISM
     Dosage: UNK
     Dates: start: 1960

REACTIONS (45)
  - Intramedullary rod insertion [Unknown]
  - Low turnover osteopathy [Not Recovered/Not Resolved]
  - Femur fracture [Recovering/Resolving]
  - Mammogram abnormal [Unknown]
  - Spondylolisthesis [Unknown]
  - Anxiety [Not Recovered/Not Resolved]
  - Thrombocytopenia [Unknown]
  - Intramedullary rod insertion [Unknown]
  - Uterine atrophy [Unknown]
  - Anxiety [Unknown]
  - Upper limb fracture [Unknown]
  - Visual acuity reduced [Unknown]
  - Adverse event [Unknown]
  - Ulnar nerve injury [Unknown]
  - Osteoporosis [Recovering/Resolving]
  - Hypokalaemia [Unknown]
  - Medical device removal [Unknown]
  - Oedema [Unknown]
  - Blood uric acid increased [Unknown]
  - Intervertebral disc protrusion [Unknown]
  - Cystitis [Unknown]
  - Arthropathy [Unknown]
  - Gout [Unknown]
  - Rheumatoid arthritis [Unknown]
  - Humerus fracture [Not Recovered/Not Resolved]
  - Adenotonsillectomy [Unknown]
  - Type V hyperlipidaemia [Unknown]
  - Medical device implantation [Unknown]
  - Depression [Not Recovered/Not Resolved]
  - Insomnia [Unknown]
  - Osteoporosis [Not Recovered/Not Resolved]
  - Femur fracture [Recovering/Resolving]
  - Liver scan abnormal [Unknown]
  - Contusion [Unknown]
  - Vitamin D deficiency [Unknown]
  - Blood 1,25-dihydroxycholecalciferol decreased [Unknown]
  - Fracture delayed union [Recovering/Resolving]
  - Toxic nodular goitre [Unknown]
  - Spinal pain [Unknown]
  - Hip fracture [Not Recovered/Not Resolved]
  - Intramedullary rod insertion [Unknown]
  - Ankle fracture [Unknown]
  - Polyarthritis [Unknown]
  - Pain in extremity [Unknown]
  - Constipation [Unknown]

NARRATIVE: CASE EVENT DATE: 19970912
